FAERS Safety Report 6381876-8 (Version None)
Quarter: 2009Q3

REPORT INFORMATION
  Report Type: 
  Country: None (occurrence: None)
  Receive Date: 20090930
  Receipt Date: 20090921
  Transmission Date: 20100115
  Serious: Yes (Hospitalization)
  Sender: FDA-Public Use
  Company Number: CN-JNJFOC-20090906533

PATIENT
  Age: 40 Year
  Sex: Female

DRUGS (3)
  1. RISPERDAL [Suspect]
     Route: 048
  2. RISPERDAL [Suspect]
     Indication: SCHIZOPHRENIA
     Route: 048
  3. CHINESE TRADITIONAL MEDICINE [Concomitant]
     Indication: BREAST HYPERPLASIA
     Route: 065

REACTIONS (4)
  - BLOOD PROLACTIN INCREASED [None]
  - BREAST HYPERPLASIA [None]
  - MENSTRUATION DELAYED [None]
  - SWELLING FACE [None]
